FAERS Safety Report 23068894 (Version 1)
Quarter: 2023Q4

REPORT INFORMATION
  Report Type: Report from Study
  Country: US (occurrence: US)
  Receive Date: 20231016
  Receipt Date: 20231016
  Transmission Date: 20240109
  Serious: Yes (Death, Other)
  Sender: FDA-Public Use
  Company Number: US-GILEAD-2023-0647356

PATIENT
  Age: 36 Year

DRUGS (1)
  1. SOFOSBUVIR\VELPATASVIR [Suspect]
     Active Substance: SOFOSBUVIR\VELPATASVIR
     Indication: Hepatitis C
     Dosage: 400/100MG 1 TAB BY MOUTH DAILY
     Route: 048
     Dates: start: 20230801

REACTIONS (1)
  - Death [Fatal]

NARRATIVE: CASE EVENT DATE: 20231012
